FAERS Safety Report 8507423-X (Version None)
Quarter: 2012Q3

REPORT INFORMATION
  Report Type: 
  Country: None (occurrence: None)
  Receive Date: 20120712
  Receipt Date: 20120705
  Transmission Date: 20120928
  Serious: Yes (Hospitalization)
  Sender: FDA-Public Use
  Company Number: US-BAYER-2011-072688

PATIENT
  Age: 36 Year
  Sex: Female
  Weight: 63.492 kg

DRUGS (1)
  1. YASMIN [Suspect]
     Indication: CONTRACEPTION
     Dosage: UNK
     Dates: start: 20040101, end: 20041001

REACTIONS (8)
  - BACK PAIN [None]
  - INJURY [None]
  - DEPRESSION [None]
  - PULMONARY EMBOLISM [None]
  - ANHEDONIA [None]
  - CHEST PAIN [None]
  - ANXIETY [None]
  - DYSPNOEA [None]
